FAERS Safety Report 22064463 (Version 1)
Quarter: 2023Q1

REPORT INFORMATION
  Report Type: Report from Study
  Country: FR (occurrence: FR)
  Receive Date: 20230306
  Receipt Date: 20230306
  Transmission Date: 20230418
  Serious: Yes (Death)
  Sender: FDA-Public Use
  Company Number: FR-PFIZER INC-PV202300040586

PATIENT

DRUGS (2)
  1. IRINOTECAN HYDROCHLORIDE [Suspect]
     Active Substance: IRINOTECAN HYDROCHLORIDE
     Indication: Oesophageal adenocarcinoma
     Dosage: 180 MG/M2, CYCLIC (DAY 1 AND 15)
     Route: 042
  2. REGORAFENIB [Suspect]
     Active Substance: REGORAFENIB
     Indication: Oesophageal adenocarcinoma
     Dosage: 160 MG, CYCLIC (DAILY ON D2-D8 AND D16-D22 EVERY 28 DAYS)

REACTIONS (1)
  - Diarrhoea [Fatal]
